FAERS Safety Report 4514991-1 (Version None)
Quarter: 2004Q4

REPORT INFORMATION
  Report Type: 
  Country: None (occurrence: None)
  Receive Date: 20041126
  Receipt Date: 20041112
  Transmission Date: 20050328
  Serious: Yes (Hospitalization)
  Sender: FDA-Public Use
  Company Number: 2004095356

PATIENT
  Sex: Female
  Weight: 58 kg

DRUGS (1)
  1. SOMATROPIN (SOMATROPIN) [Suspect]
     Indication: HYPOPITUITARISM
     Dosage: (0.2 MG, 1 D), SUBCUTANEOUS
     Route: 058
     Dates: start: 20020626

REACTIONS (1)
  - CEREBROVASCULAR ACCIDENT [None]
